FAERS Safety Report 15303920 (Version 2)
Quarter: 2019Q1

REPORT INFORMATION
  Report Type: Spontaneous
  Country: US (occurrence: US)
  Receive Date: 20180821
  Receipt Date: 20190201
  Transmission Date: 20190417
  Serious: No
  Sender: FDA-Public Use
  Company Number: US-AMGEN INC.-USASL2018101574

PATIENT
  Age: 47 Year
  Sex: Female

DRUGS (3)
  1. BENADRYL [Concomitant]
     Active Substance: DIPHENHYDRAMINE HYDROCHLORIDE
     Indication: MIGRAINE
     Dosage: 100 MG, UNK (3 SHOTS IN OCT, 8 SHOTS IN DEC)
  2. AIMOVIG [Suspect]
     Active Substance: ERENUMAB-AOOE
     Indication: MIGRAINE PROPHYLAXIS
     Dosage: 70 MG, QMO
     Route: 065
     Dates: start: 20180713
  3. AIMOVIG [Suspect]
     Active Substance: ERENUMAB-AOOE
     Dosage: 140 MG, QMO
     Route: 065

REACTIONS (3)
  - Nausea [Unknown]
  - Migraine [Unknown]
  - Stress [Unknown]

NARRATIVE: CASE EVENT DATE: 2018
